FAERS Safety Report 5760452-1 (Version None)
Quarter: 2008Q2

REPORT INFORMATION
  Report Type: 
  Country: None (occurrence: None)
  Receive Date: 20080605
  Receipt Date: 20080527
  Transmission Date: 20081010
  Serious: Yes (Hospitalization, Disabling, Other)
  Sender: FDA-Public Use
  Company Number: US-PFIZER INC-2008045447

PATIENT
  Sex: Male
  Weight: 130.2 kg

DRUGS (1)
  1. BEXTRA [Suspect]
     Indication: BACK PAIN

REACTIONS (3)
  - BLINDNESS UNILATERAL [None]
  - CEREBROVASCULAR DISORDER [None]
  - RASH [None]
